FAERS Safety Report 7285478-0 (Version None)
Quarter: 2011Q1

REPORT INFORMATION
  Report Type: 
  Country: None (occurrence: None)
  Receive Date: 20110210
  Receipt Date: 20110201
  Transmission Date: 20110831
  Serious: Yes (Hospitalization)
  Sender: FDA-Public Use
  Company Number: BR-ASTRAZENECA-2011SE05695

PATIENT
  Age: 81 Year
  Sex: Female

DRUGS (3)
  1. FORASEQ [Concomitant]
     Indication: EMPHYSEMA
     Dates: start: 20010101
  2. NOLVADEX [Suspect]
     Indication: BREAST CANCER
     Route: 048
     Dates: start: 20091101
  3. SPIRIVA [Concomitant]
     Indication: EMPHYSEMA
     Dates: start: 20010101

REACTIONS (5)
  - ALOPECIA [None]
  - BRONCHOPNEUMONIA [None]
  - DYSPNOEA [None]
  - EMPHYSEMA [None]
  - CONSTIPATION [None]
